FAERS Safety Report 4458208-5 (Version None)
Quarter: 2004Q3

REPORT INFORMATION
  Report Type: 
  Country: None (occurrence: None)
  Receive Date: 20040924
  Receipt Date: 20040915
  Transmission Date: 20050211
  Serious: Yes (Hospitalization)
  Sender: FDA-Public Use
  Company Number: FR-ROCHE-380408

PATIENT
  Age: 83 Year
  Sex: Male

DRUGS (4)
  1. LOXEN LP [Suspect]
     Indication: DRUG USE FOR UNKNOWN INDICATION
     Route: 048
  2. EXELON [Suspect]
     Indication: DEMENTIA ALZHEIMER'S TYPE
     Dosage: DRUG GENERIC NAME WAS REPORTED AS RIVASTIGMINE TARTATE.  THERAPY DURATION WAS REPORTED AS 3 YEARS 1+
     Route: 048
     Dates: start: 20000315, end: 20030721
  3. ASPEGIC 325 [Suspect]
     Indication: DRUG USE FOR UNKNOWN INDICATION
     Dosage: DRUG NAME WAS REPORTED AS ASPEGIC BABY
     Route: 048
     Dates: end: 20030713
  4. DAFALGAN CODEINE [Suspect]
     Indication: DRUG USE FOR UNKNOWN INDICATION
     Dosage: DRUG NAME WAS REPORTED AS DAFFALGAN CODEINE
     Route: 048
     Dates: end: 20030713

REACTIONS (2)
  - HIATUS HERNIA [None]
  - MALLORY-WEISS SYNDROME [None]
